FAERS Safety Report 23012383 (Version 2)
Quarter: 2024Q1

REPORT INFORMATION
  Report Type: Spontaneous
  Country: US (occurrence: US)
  Receive Date: 20230930
  Receipt Date: 20240124
  Transmission Date: 20240409
  Serious: No
  Sender: FDA-Public Use
  Company Number: US-BIOGEN-2023BI01228240

PATIENT
  Age: 60 Year
  Sex: Female

DRUGS (1)
  1. TYSABRI [Suspect]
     Active Substance: NATALIZUMAB
     Indication: Multiple sclerosis
     Route: 050
     Dates: start: 20200731

REACTIONS (3)
  - Scoliosis [Unknown]
  - Sciatica [Unknown]
  - Dysgraphia [Unknown]

NARRATIVE: CASE EVENT DATE: 20230925
